FAERS Safety Report 5191436-2 (Version None)
Quarter: 2006Q4

REPORT INFORMATION
  Report Type: 
  Country: None (occurrence: None)
  Receive Date: 20061226
  Receipt Date: 20061201
  Transmission Date: 20070319
  Serious: Yes (Other)
  Sender: FDA-Public Use
  Company Number: JP-MERCK-0612USA00762

PATIENT
  Age: 81 Year
  Sex: Female
  Weight: 57 kg

DRUGS (2)
  1. FOSAMAX [Suspect]
     Indication: OSTEOPOROSIS
     Route: 048
     Dates: start: 20061105, end: 20061126
  2. SELTOUCH [Concomitant]
     Route: 061
     Dates: start: 20061017

REACTIONS (2)
  - ANOREXIA [None]
  - HYPOAESTHESIA [None]
